FAERS Safety Report 4459467-5 (Version None)
Quarter: 2004Q3

REPORT INFORMATION
  Report Type: 
  Country: None (occurrence: None)
  Receive Date: 20040927
  Receipt Date: 20040916
  Transmission Date: 20050211
  Serious: Yes (Hospitalization)
  Sender: FDA-Public Use
  Company Number: FR-ABBOTT-04P-056-0273564-00

PATIENT
  Age: 45 Year
  Sex: Female

DRUGS (2)
  1. DEPAKENE [Suspect]
     Indication: INTENTIONAL OVERDOSE
     Route: 048
     Dates: start: 20040908, end: 20040908
  2. DEPAKENE [Suspect]
     Indication: EPILEPSY
     Route: 048

REACTIONS (4)
  - COMA [None]
  - DYSPNOEA [None]
  - HYPOKALAEMIA [None]
  - INTENTIONAL OVERDOSE [None]
